FAERS Safety Report 20788606 (Version 1)
Quarter: 2022Q2

REPORT INFORMATION
  Report Type: Spontaneous
  Country: IN (occurrence: IN)
  Receive Date: 20220505
  Receipt Date: 20220505
  Transmission Date: 20220720
  Serious: Yes (Hospitalization)
  Sender: FDA-Public Use
  Company Number: IN-STRIDES ARCOLAB LIMITED-2022SP004890

PATIENT
  Age: 85 Year
  Sex: Female

DRUGS (6)
  1. MEMANTINE [Suspect]
     Active Substance: MEMANTINE
     Indication: Dementia Alzheimer^s type
     Dosage: 10 MILLIGRAM, QD (TABLET)
     Route: 065
  2. THYROXINE [Concomitant]
     Active Substance: LEVOTHYROXINE
     Indication: Hypothyroidism
     Dosage: UNK
     Route: 065
  3. LINAGLIPTIN [Concomitant]
     Active Substance: LINAGLIPTIN
     Indication: Type 2 diabetes mellitus
     Dosage: UNK
     Route: 065
  4. ERYTHROPOIETIN [Concomitant]
     Active Substance: ERYTHROPOIETIN
     Indication: Chronic kidney disease
     Dosage: UNK
     Route: 065
  5. CEFOPERAZONE [Concomitant]
     Active Substance: CEFOPERAZONE
     Indication: Urinary tract infection bacterial
     Dosage: UNK
     Route: 042
  6. SULBACTAM [Concomitant]
     Active Substance: SULBACTAM
     Indication: Urinary tract infection bacterial
     Dosage: UNK
     Route: 065

REACTIONS (1)
  - Metabolic encephalopathy [Recovered/Resolved]
